FAERS Safety Report 4690045-9 (Version None)
Quarter: 2005Q2

REPORT INFORMATION
  Report Type: 
  Country: None (occurrence: None)
  Receive Date: 20050614
  Receipt Date: 20050531
  Transmission Date: 20051028
  Serious: Yes (Other)
  Sender: FDA-Public Use
  Company Number: 2005083293

PATIENT
  Age: 28 Year
  Sex: Female
  Weight: 31.0714 kg

DRUGS (1)
  1. DEPO-PROVERA [Suspect]
     Indication: CONTRACEPTION
     Dosage: (SINGLE INJECTION)
     Dates: start: 19950801, end: 19950801

REACTIONS (15)
  - ACNE [None]
  - AMENORRHOEA [None]
  - ANOREXIA [None]
  - ASTHENIA [None]
  - DEPRESSION [None]
  - DIZZINESS [None]
  - FALL [None]
  - FLUID RETENTION [None]
  - HAIR GROWTH ABNORMAL [None]
  - HYPERHIDROSIS [None]
  - INSOMNIA [None]
  - LIBIDO DECREASED [None]
  - PELVIC PAIN [None]
  - UTERINE PAIN [None]
  - WEIGHT INCREASED [None]
